FAERS Safety Report 6314713-8 (Version None)
Quarter: 2009Q3

REPORT INFORMATION
  Report Type: 
  Country: None (occurrence: None)
  Receive Date: 20090819
  Receipt Date: 20090812
  Transmission Date: 20100115
  Serious: Yes (Other)
  Sender: FDA-Public Use
  Company Number: DE-JNJFOC-20090500320

PATIENT
  Age: 15 Year
  Sex: Male
  Weight: 29.55 kg

DRUGS (3)
  1. TOPAMAX [Suspect]
     Indication: EPILEPSY
     Route: 048
  2. VALPROATE SODIUM [Concomitant]
     Route: 048
  3. LAMOTRIGINE [Concomitant]
     Route: 048

REACTIONS (3)
  - GROWTH RETARDATION [None]
  - INSULIN-LIKE GROWTH FACTOR DECREASED [None]
  - WEIGHT GAIN POOR [None]
